FAERS Safety Report 13190501 (Version 4)
Quarter: 2018Q1

REPORT INFORMATION
  Report Type: Spontaneous
  Country: JP (occurrence: JP)
  Receive Date: 20170206
  Receipt Date: 20180306
  Transmission Date: 20180508
  Serious: Yes (Hospitalization, Other)
  Sender: FDA-Public Use
  Company Number: JP-PFIZER INC-2017044960

PATIENT
  Age: 76 Year
  Sex: Female

DRUGS (5)
  1. FLUTICASONE. [Concomitant]
     Active Substance: FLUTICASONE
     Indication: ASTHMA
     Dosage: 400 MG, DAILY
     Route: 055
  2. MEROPENEM. [Suspect]
     Active Substance: MEROPENEM
     Indication: BACTERIAL INFECTION
     Dosage: 1.5 G, DAILY
  3. PREDNISOLONE. [Suspect]
     Active Substance: PREDNISOLONE
     Indication: ASTHMA
     Dosage: 5 MG, DAILY
  4. PREDNISOLONE. [Suspect]
     Active Substance: PREDNISOLONE
     Dosage: 3 MG, UNK
     Route: 048
  5. PREDNISOLONE. [Suspect]
     Active Substance: PREDNISOLONE
     Dosage: 2 MG, UNK

REACTIONS (3)
  - Pruritus [Unknown]
  - Rash [Unknown]
  - Tuberculosis [Recovered/Resolved]
